FAERS Safety Report 8317132-8 (Version None)
Quarter: 2012Q2

REPORT INFORMATION
  Report Type: 
  Country: None (occurrence: None)
  Receive Date: 20120425
  Receipt Date: 20120402
  Transmission Date: 20120825
  Serious: Yes (Congenital Anomaly, Other)
  Sender: FDA-Public Use
  Company Number: 2012P1012008

PATIENT
  Sex: Female

DRUGS (1)
  1. METHIMAZOLE [Suspect]
     Indication: BASEDOW'S DISEASE
     Dosage: 10 MG;QD;PO
     Route: 048

REACTIONS (3)
  - BONE DISORDER [None]
  - SKIN NECROSIS [None]
  - CONGENITAL NAIL DISORDER [None]
